FAERS Safety Report 15561305 (Version 1)
Quarter: 2018Q4

REPORT INFORMATION
  Report Type: Spontaneous
  Country: US (occurrence: US)
  Receive Date: 20181025
  Receipt Date: 20181025
  Transmission Date: 20190205
  Serious: No
  Sender: FDA-Public Use
  Company Number: None

PATIENT
  Age: 56 Year
  Sex: Male
  Weight: 80.55 kg

DRUGS (12)
  1. HUMULIN 70/30 [Concomitant]
     Active Substance: INSULIN HUMAN
     Dates: start: 20180830
  2. FUROSEMIDE. [Concomitant]
     Active Substance: FUROSEMIDE
     Dates: start: 20180830
  3. DAPTOMYCIN. [Suspect]
     Active Substance: DAPTOMYCIN
     Indication: SOFT TISSUE INFECTION
     Route: 042
     Dates: start: 20180918, end: 20181011
  4. ASPIRIN. [Concomitant]
     Active Substance: ASPIRIN
     Dates: start: 20180830
  5. LEVOTHYROXINE. [Concomitant]
     Active Substance: LEVOTHYROXINE
     Dates: start: 20160916
  6. LANTUS [Concomitant]
     Active Substance: INSULIN GLARGINE
     Dates: start: 20160916
  7. GABAPENTIN. [Concomitant]
     Active Substance: GABAPENTIN
     Dates: start: 20160916
  8. RANITIDINE. [Concomitant]
     Active Substance: RANITIDINE
     Dates: start: 20180830
  9. CARVEDILOL. [Concomitant]
     Active Substance: CARVEDILOL
     Dates: start: 20180830
  10. LISINOPRIL. [Concomitant]
     Active Substance: LISINOPRIL
     Dates: start: 20180830
  11. HYDRALAZINE [Concomitant]
     Active Substance: HYDRALAZINE HYDROCHLORIDE
     Dates: start: 20180830
  12. MULTIVITAMIN [Concomitant]
     Active Substance: VITAMINS
     Dates: start: 20160916

REACTIONS (1)
  - Blood creatine phosphokinase increased [None]

NARRATIVE: CASE EVENT DATE: 20181011
